FAERS Safety Report 9370247 (Version 2)
Quarter: 2013Q2

REPORT INFORMATION
  Report Type: Spontaneous
  Country: US (occurrence: None)
  Receive Date: 20130624
  Receipt Date: 20130626
  Transmission Date: 20140414
  Serious: Yes (Hospitalization)
  Sender: FDA-Public Use
  Company Number: ACO_36800_2013

PATIENT
  Age: 73 Year
  Sex: Male
  Weight: 79.4 kg

DRUGS (7)
  1. AMPYRA [Suspect]
     Indication: MULTIPLE SCLEROSIS
     Route: 048
     Dates: start: 20130424, end: 20130517
  2. AMPYRA [Suspect]
     Indication: GAIT DISTURBANCE
     Route: 048
     Dates: start: 20130424, end: 20130517
  3. CITALOPRAM (CITALOPRAM HYDROCHLORIDE) [Concomitant]
  4. ARICEPT (DONEPEZIL HYDROCHLORIDE) [Concomitant]
  5. DETROL LA (TOLTERODINE I-TARTRATE) [Concomitant]
  6. COPAXONE (GLATIRAMER ACETATE) [Concomitant]
  7. VITAMIN [Concomitant]

REACTIONS (2)
  - Multiple sclerosis relapse [None]
  - Fall [None]
